FAERS Safety Report 17055059 (Version 1)
Quarter: 2019Q4

REPORT INFORMATION
  Report Type: Report from Study
  Country: IT (occurrence: IT)
  Receive Date: 20191120
  Receipt Date: 20191120
  Transmission Date: 20200122
  Serious: Yes (Death, Hospitalization)
  Sender: FDA-Public Use
  Company Number: PHHY2018IT069522

PATIENT
  Age: 35 Year
  Sex: Female
  Weight: 45 kg

DRUGS (1)
  1. GILENYA [Suspect]
     Active Substance: FINGOLIMOD HYDROCHLORIDE
     Indication: MULTIPLE SCLEROSIS
     Dosage: 0.5 MG, QD
     Route: 048
     Dates: start: 20121017, end: 20171021

REACTIONS (16)
  - Contusion [Unknown]
  - Urinary incontinence [Unknown]
  - Language disorder [Unknown]
  - Pain [Unknown]
  - Gastrointestinal stenosis [Recovering/Resolving]
  - Abdominal pain [Recovering/Resolving]
  - Multiple sclerosis [Fatal]
  - Faecaloma [Recovered/Resolved]
  - Amnesia [Unknown]
  - Intestinal obstruction [Recovered/Resolved]
  - Muscle spasticity [Unknown]
  - Paresis [Unknown]
  - Nystagmus [Unknown]
  - Ataxia [Unknown]
  - Urinary retention [Unknown]
  - Vomiting [Recovering/Resolving]

NARRATIVE: CASE EVENT DATE: 20171021
